FAERS Safety Report 4878088-3 (Version None)
Quarter: 2006Q1

REPORT INFORMATION
  Report Type: 
  Country: None (occurrence: None)
  Receive Date: 20060110
  Receipt Date: 20051229
  Transmission Date: 20060701
  Serious: Yes (Hospitalization, Other)
  Sender: FDA-Public Use
  Company Number: 2006000530

PATIENT
  Age: 19 Year
  Sex: Female

DRUGS (2)
  1. ZIPRASIDONE HCL [Suspect]
     Indication: SCHIZOPHRENIFORM DISORDER
     Dosage: 120 MG
  2. MIRTAZAPINE [Suspect]
     Indication: SCHIZOPHRENIA
     Dosage: 30 MG

REACTIONS (3)
  - AGRANULOCYTOSIS [None]
  - DEPRESSION [None]
  - WHITE BLOOD CELL COUNT DECREASED [None]
